FAERS Safety Report 8455250-4 (Version None)
Quarter: 2012Q2

REPORT INFORMATION
  Report Type: 
  Country: None (occurrence: None)
  Receive Date: 20120614
  Receipt Date: 20120604
  Transmission Date: 20120825
  Serious: No
  Sender: FDA-Public Use
  Company Number: REG-2012-180

PATIENT

DRUGS (21)
  1. MARINOL [Concomitant]
  2. TOPROL-XL [Concomitant]
  3. PROAMINTINE [Concomitant]
  4. REGLAN [Suspect]
  5. PROSCAR [Concomitant]
  6. FLORINEF ASETATE [Concomitant]
  7. FOLIC ACID [Concomitant]
  8. DILAUDID [Concomitant]
  9. DOLOPHINE HCL [Concomitant]
  10. NOVOLOG [Concomitant]
  11. ZOVIRAX [Concomitant]
  12. ALLOPURINOL [Concomitant]
  13. CALCIUM CARBONATE [Concomitant]
  14. COLACE [Concomitant]
  15. KYTRIL [Concomitant]
  16. LIDODERM [Concomitant]
  17. ALLOPURINOL [Suspect]
  18. REGLAN [Concomitant]
  19. CLARITIN [Concomitant]
  20. ASPIRIN [Concomitant]
  21. ARANESP [Concomitant]

REACTIONS (2)
  - CONDITION AGGRAVATED [None]
  - LEUKOPENIA [None]
